FAERS Safety Report 7737414-8 (Version None)
Quarter: 2011Q3

REPORT INFORMATION
  Report Type: 
  Country: None (occurrence: None)
  Receive Date: 20110908
  Receipt Date: 20110826
  Transmission Date: 20111222
  Serious: Yes (Hospitalization)
  Sender: FDA-Public Use
  Company Number: US-GLAXOSMITHKLINE-A0722949A

PATIENT
  Age: 56 Year
  Sex: Female
  Weight: 90.9 kg

DRUGS (19)
  1. GLUCOPHAGE [Concomitant]
     Dates: start: 19990101, end: 20060101
  2. NOVOLOG [Concomitant]
  3. RANITIDINE [Concomitant]
  4. GLIMEPIRIDE [Concomitant]
  5. AVANDIA [Suspect]
     Indication: DIABETES MELLITUS
     Dosage: 4MG TWICE PER DAY
     Dates: start: 20040401, end: 20070101
  6. ELAVIL [Concomitant]
  7. PRECOSE [Concomitant]
  8. GLARGINE [Concomitant]
  9. METFORMIN HCL [Concomitant]
     Dates: start: 20040101, end: 20070101
  10. ATENOLOL [Concomitant]
  11. LANTUS [Concomitant]
  12. LISINOPRIL [Concomitant]
  13. SIMVASTATIN [Concomitant]
  14. FENOFIBRATE [Concomitant]
  15. NORVASC [Concomitant]
  16. ZOCOR [Concomitant]
  17. AMARYL [Concomitant]
     Dosage: 4MG PER DAY
     Dates: start: 19990101, end: 20070101
  18. ACCUPRIL [Concomitant]
  19. COZAAR [Concomitant]

REACTIONS (11)
  - RESPIRATORY DISTRESS [None]
  - ANAEMIA [None]
  - ARTERIOSCLEROSIS [None]
  - SUPRAVENTRICULAR TACHYCARDIA [None]
  - DIABETES MELLITUS [None]
  - PATHOLOGICAL FRACTURE [None]
  - MYOCARDIAL INFARCTION [None]
  - PULMONARY OEDEMA [None]
  - HYPERTENSION [None]
  - DEPRESSION [None]
  - CARDIAC FAILURE CONGESTIVE [None]
